FAERS Safety Report 20076221 (Version 1)
Quarter: 2021Q4

REPORT INFORMATION
  Report Type: Spontaneous
  Country: US (occurrence: US)
  Receive Date: 20211116
  Receipt Date: 20211116
  Transmission Date: 20220303
  Serious: No
  Sender: FDA-Public Use
  Company Number: US-CELGENE-USA-20211102369

PATIENT
  Sex: Male
  Weight: 75.818 kg

DRUGS (8)
  1. POMALYST [Suspect]
     Active Substance: POMALIDOMIDE
     Indication: Plasma cell myeloma
     Dosage: TAKE 1 CAPSULE AT THE SAME TIME DAILY, FOR 21 DAYS, THEN OFF FOR 7 DAYS, AND REPEAT CYCLE
     Route: 048
     Dates: start: 202108
  2. REVLIMID [Suspect]
     Active Substance: LENALIDOMIDE
     Indication: Plasma cell myeloma
     Dosage: TAKE 1 CAPSULE AT THE SAME TIME EVERY DAY FOR 21 DAYS FOLLOWED BY A 7 DAY BREAK, REPEAT CYCLE
     Route: 048
     Dates: start: 201405
  3. REVLIMID [Suspect]
     Active Substance: LENALIDOMIDE
     Dosage: TAKE 1 CAPSULE AT THE SAME TIME EVERY DAY FOR 21 DAYS FOLLOWED BY A 7 DAY BREAK, REPEAT CYCLE
     Route: 048
     Dates: start: 201506
  4. REVLIMID [Suspect]
     Active Substance: LENALIDOMIDE
     Dosage: TAKE 1 CAPSULE AT THE SAME TIME EVERY DAY FOR 21 DAYS FOLLOWED BY A 7 DAY BREAK, REPEAT CYCLE
     Route: 048
     Dates: start: 201604
  5. REVLIMID [Suspect]
     Active Substance: LENALIDOMIDE
     Dosage: TAKE 1 CAPSULE AT THE SAME TIME EVERY DAY FOR 21 DAYS FOLLOWED BY A 7 DAY BREAK, REPEAT CYCLE
     Route: 048
     Dates: start: 202107
  6. VELCADE [Concomitant]
     Active Substance: BORTEZOMIB
     Indication: Product used for unknown indication
     Route: 065
  7. ELIQUIS [Concomitant]
     Active Substance: APIXABAN
     Indication: Product used for unknown indication
     Route: 048
  8. DEXAMETHASONE [Concomitant]
     Active Substance: DEXAMETHASONE
     Indication: Product used for unknown indication
     Route: 048

REACTIONS (1)
  - Sinusitis [Recovered/Resolved]
